FAERS Safety Report 13271141 (Version 1)
Quarter: 2017Q1

REPORT INFORMATION
  Report Type: Spontaneous
  Country: US (occurrence: US)
  Receive Date: 20170226
  Receipt Date: 20170226
  Transmission Date: 20170428
  Serious: No
  Sender: FDA-Public Use
  Company Number: US-DRREDDYS-USA/USA/16/0084964

PATIENT
  Age: 58 Year
  Sex: Female
  Weight: 61.68 kg

DRUGS (1)
  1. SUMATRIPTAN INJECTION USP, 6 MG/0.5 ML [Suspect]
     Active Substance: SUMATRIPTAN
     Indication: MIGRAINE
     Route: 058

REACTIONS (4)
  - Drug dose omission [Unknown]
  - Product physical issue [Unknown]
  - Product packaging quantity issue [Unknown]
  - Underdose [Unknown]

NARRATIVE: CASE EVENT DATE: 20161118
